FAERS Safety Report 8032340-1 (Version None)
Quarter: 2011Q4

REPORT INFORMATION
  Report Type: 
  Country: None (occurrence: None)
  Receive Date: 20111201
  Receipt Date: 20110926
  Transmission Date: 20120403
  Serious: Yes (Hospitalization)
  Sender: FDA-Public Use
  Company Number: 20110926CINRY2310

PATIENT
  Age: 54 Year
  Sex: Female

DRUGS (15)
  1. ADVAIR (SERETIDE /01420901/)` [Concomitant]
  2. DIAZEPAM [Concomitant]
  3. NASAL SPRAY [Concomitant]
  4. XOPENEX [Concomitant]
  5. OXYGEN (OXYGEN) [Concomitant]
  6. CINRYZE [Suspect]
     Indication: HEREDITARY ANGIOEDEMA
     Dosage: (1500 IU, EVERY 2 TO 3 DAYS), INTRAVENOUS
     Route: 042
  7. CINRYZE [Suspect]
     Indication: PROPHYLAXIS
     Dosage: (1500 IU, EVERY 2 TO 3 DAYS), INTRAVENOUS
     Route: 042
  8. HYDROCODONE BITARTRATE [Concomitant]
  9. PLAVIX [Concomitant]
  10. EPIPEN [Concomitant]
  11. DILTIAZEM [Concomitant]
  12. DANAZOL [Concomitant]
  13. BENADRY (DIPHENHYDRAMINE HYDROCHLORIDE) [Concomitant]
  14. MELATONIN (MELATONIN) [Concomitant]
  15. METOPROLOL TARTRATE [Concomitant]

REACTIONS (3)
  - HERNIA [None]
  - THERAPY REGIMEN CHANGED [None]
  - HEREDITARY ANGIOEDEMA [None]
